FAERS Safety Report 11964748 (Version 2)
Quarter: 2016Q3

REPORT INFORMATION
  Report Type: Spontaneous
  Country: FR (occurrence: FR)
  Receive Date: 20160127
  Receipt Date: 20160823
  Transmission Date: 20161109
  Serious: Yes (Other)
  Sender: FDA-Public Use
  Company Number: FR-BRISTOL-MYERS SQUIBB COMPANY-13871637

PATIENT
  Age: 33 Year
  Sex: Female
  Weight: 95 kg

DRUGS (8)
  1. ABILIFY [Suspect]
     Active Substance: ARIPIPRAZOLE
     Indication: PERSONALITY DISORDER
     Dosage: 30 MG, UNK
     Route: 048
     Dates: start: 2006, end: 20070810
  2. ANXIOLYTIC NOS [Concomitant]
     Indication: PERSONALITY DISORDER
     Route: 065
  3. LYSANXIA [Concomitant]
     Active Substance: PRAZEPAM
     Indication: ANXIETY
     Dosage: 30 MG, UNK
     Route: 048
     Dates: start: 2007, end: 20070810
  4. ZOLOFT [Concomitant]
     Active Substance: SERTRALINE HYDROCHLORIDE
     Indication: DEPRESSION
     Dosage: 150 MG, UNK
     Route: 048
     Dates: start: 2006, end: 20070810
  5. TERALITHE [Suspect]
     Active Substance: LITHIUM CARBONATE
     Indication: PERSONALITY DISORDER
     Dosage: 400 MG, TID
     Route: 048
     Dates: start: 2006, end: 20070810
  6. TERALITHE [Suspect]
     Active Substance: LITHIUM CARBONATE
     Indication: TEMPERATURE REGULATION DISORDER
  7. TERCIAN [Concomitant]
     Active Substance: CYAMEMAZINE
     Indication: BORDERLINE PERSONALITY DISORDER
     Dosage: 300 MG, QD
     Route: 048
     Dates: start: 2006, end: 20070810
  8. XANAX [Concomitant]
     Active Substance: ALPRAZOLAM
     Indication: ANXIETY
     Dosage: UNK
     Route: 048

REACTIONS (4)
  - Pregnancy [Recovered/Resolved]
  - Live birth [Unknown]
  - Gestational diabetes [Unknown]
  - Caesarean section [Unknown]

NARRATIVE: CASE EVENT DATE: 20080321
